FAERS Safety Report 19079848 (Version 2)
Quarter: 2021Q2

REPORT INFORMATION
  Report Type: Other
  Country: DE (occurrence: DE)
  Receive Date: 20210331
  Receipt Date: 20210623
  Transmission Date: 20210717
  Serious: Yes (Other)
  Sender: FDA-Public Use
  Company Number: DE-ROCHE-1788850

PATIENT
  Age: 42 Year
  Sex: Female

DRUGS (2)
  1. PEGINTERFERON ALFA?2A. [Suspect]
     Active Substance: PEGINTERFERON ALFA-2A
     Indication: CHRONIC HEPATITIS C
     Route: 065
  2. RIBAVIRIN. [Suspect]
     Active Substance: RIBAVIRIN
     Indication: CHRONIC HEPATITIS C
     Route: 065

REACTIONS (24)
  - Joint swelling [Recovered/Resolved]
  - Alopecia [Recovered/Resolved]
  - Disturbance in attention [Recovered/Resolved]
  - Diarrhoea [Recovered/Resolved]
  - Fatigue [Recovered/Resolved]
  - Insomnia [Recovered/Resolved]
  - Thrombocytopenia [Recovered/Resolved]
  - Nasopharyngitis [Recovered/Resolved]
  - Influenza like illness [Recovered/Resolved]
  - Sputum discoloured [Recovered/Resolved]
  - Weight increased [Recovered/Resolved]
  - Abdominal distension [Recovered/Resolved]
  - Mood swings [Recovered/Resolved]
  - Ascites [Recovered/Resolved]
  - Gastrointestinal infection [Recovered/Resolved]
  - Nausea [Recovered/Resolved]
  - Leukopenia [Recovered/Resolved]
  - Weight decreased [Unknown]
  - Cough [Recovered/Resolved]
  - Pharyngitis [Recovered/Resolved]
  - Nasopharyngitis [Unknown]
  - Pruritus [Recovered/Resolved]
  - Abdominal pain upper [Recovered/Resolved]
  - Vomiting [Recovered/Resolved]

NARRATIVE: CASE EVENT DATE: 20120403
